FAERS Safety Report 5371596-0 (Version None)
Quarter: 2007Q2

REPORT INFORMATION
  Report Type: 
  Country: None (occurrence: None)
  Receive Date: 20070627
  Receipt Date: 20070615
  Transmission Date: 20071010
  Serious: Yes (Life-Threatening, Hospitalization)
  Sender: FDA-Public Use
  Company Number: JP-JNJFOC-20060400012

PATIENT
  Sex: Male
  Weight: 45 kg

DRUGS (19)
  1. REMICADE [Suspect]
     Route: 042
  2. REMICADE [Suspect]
     Route: 042
  3. REMICADE [Suspect]
     Route: 042
  4. REMICADE [Suspect]
     Route: 042
  5. REMICADE [Suspect]
     Route: 042
  6. REMICADE [Suspect]
     Route: 042
  7. REMICADE [Suspect]
     Route: 042
  8. REMICADE [Suspect]
     Route: 042
  9. REMICADE [Suspect]
     Indication: CROHN'S DISEASE
     Route: 042
  10. LEUKERIN [Suspect]
     Indication: CROHN'S DISEASE
     Route: 048
  11. PREDNISOLONE [Suspect]
     Indication: CROHN'S DISEASE
     Route: 048
  12. SALAZOPYRIN [Suspect]
     Indication: CROHN'S DISEASE
     Route: 048
  13. OMEPRAL [Concomitant]
     Indication: REFLUX OESOPHAGITIS
     Route: 048
  14. ALLOID G [Concomitant]
     Indication: REFLUX OESOPHAGITIS
     Route: 048
  15. FERROMIA [Concomitant]
     Route: 048
  16. LEVOFLOXACIN [Concomitant]
  17. RINDERON [Concomitant]
  18. MEIACT [Concomitant]
     Route: 048
  19. DICLOD [Concomitant]

REACTIONS (2)
  - DISSEMINATED INTRAVASCULAR COAGULATION [None]
  - SEPSIS [None]
